FAERS Safety Report 9250745 (Version 2)
Quarter: 2014Q1

REPORT INFORMATION
  Report Type: Spontaneous
  Country: US (occurrence: None)
  Receive Date: 20130305
  Receipt Date: 20140306
  Transmission Date: 20141002
  Serious: Yes (Hospitalization)
  Sender: FDA-Public Use
  Company Number: 163-21880-12093046

PATIENT
  Age: 82 Year
  Sex: Male
  Weight: 77.11 kg

DRUGS (16)
  1. REVLIMID (LENALIDOMIDE) (CAPSULES) [Suspect]
     Indication: LYMPHOPROLIFERATIVE DISORDER
     Dosage: 10 MG, 1 IN 1 D, PO
     Route: 048
     Dates: start: 20120620
  2. AMARYL (GLIMPIRIDE) [Concomitant]
  3. IPRATROPIUM-ALBUTEROL (COMBIVENT) [Concomitant]
  4. ALBUTEROL SULFATE (SALBUTAMOL SULFATE) [Concomitant]
  5. DIGOXIN (DIGOXIN) [Concomitant]
  6. FOLIC ACID (FOLIC ACID) [Concomitant]
  7. BREATHING MEDS (OTHER RESPIRATORY SYSTEM PRODUCTS) [Concomitant]
  8. ANTIBIOTICS (ANTIBIOTICS) [Concomitant]
  9. STEROIDS (CORTICOSTEROIDS) [Concomitant]
  10. XOPENEX (LEVOSALBUTAMOL) [Concomitant]
  11. XARELTO (RIVAROXABAN) [Concomitant]
  12. DILTIAZEM (DILTIAZEM) [Concomitant]
  13. FENOFIBRATE (FENOFIBRATE) [Concomitant]
  14. FINASTERIDE (FINASTERIDE) [Concomitant]
  15. GLIMPIRIDE (GLIMEPIRIDE) [Concomitant]
  16. MULTIVITAMINS (MULTIVITAMINS) [Concomitant]

REACTIONS (7)
  - Obstructive airways disorder [None]
  - Pneumonia [None]
  - Pancytopenia [None]
  - Febrile neutropenia [None]
  - Dyspnoea [None]
  - Chronic obstructive pulmonary disease [None]
  - Chest pain [None]
